FAERS Safety Report 7243477-9 (Version None)
Quarter: 2011Q1

REPORT INFORMATION
  Report Type: 
  Country: None (occurrence: None)
  Receive Date: 20110119
  Receipt Date: 20110119
  Transmission Date: 20110831
  Serious: Yes (Other)
  Sender: FDA-Public Use
  Company Number: None

PATIENT
  Age: 39 Year
  Sex: Female
  Weight: 124.7392 kg

DRUGS (1)
  1. CYMBALTA [Suspect]
     Indication: DEPRESSION
     Dosage: 30MG ONCE A DAY PO
     Route: 048
     Dates: start: 20101123, end: 20110115

REACTIONS (7)
  - DISORIENTATION [None]
  - NAUSEA [None]
  - MEMORY IMPAIRMENT [None]
  - WITHDRAWAL SYNDROME [None]
  - GASTROINTESTINAL DISORDER [None]
  - FEELING ABNORMAL [None]
  - INFLUENZA LIKE ILLNESS [None]
